FAERS Safety Report 25003335 (Version 1)
Quarter: 2025Q1

REPORT INFORMATION
  Report Type: Spontaneous
  Country: US (occurrence: US)
  Receive Date: 20250224
  Receipt Date: 20250224
  Transmission Date: 20250409
  Serious: Yes (Hospitalization)
  Sender: BAYER HEALTHCARE LLC
  Company Number: US-MLMSERVICE-20250207-PI399240-00033-1

PATIENT
  Age: 65 Year
  Sex: Female
  Weight: 100 kg

DRUGS (1)
  1. PAIN STOPPER EXTRA [Suspect]
     Active Substance: ACETAMINOPHEN\ASPIRIN\CAFFEINE\SALICYLAMIDE
     Indication: Back pain
     Dosage: 15 DF, QD (15 PILLS (7.5 G) A DAY FOR MULTIPLE WEEKS, WHICH APPROXIMATES TO 75 MG/KG/DAY)
     Route: 048

REACTIONS (7)
  - Hallucination, visual [Recovered/Resolved]
  - Toxicity to various agents [Recovered/Resolved]
  - Metabolic acidosis [Recovered/Resolved]
  - Tinnitus [Recovered/Resolved]
  - Accidental overdose [Recovered/Resolved]
  - Analgesic drug level above therapeutic [None]
  - Incorrect dose administered [None]
